FAERS Safety Report 7423525-3 (Version None)
Quarter: 2011Q2

REPORT INFORMATION
  Report Type: 
  Country: None (occurrence: None)
  Receive Date: 20110419
  Receipt Date: 20110408
  Transmission Date: 20111010
  Serious: Yes (Hospitalization, Other)
  Sender: FDA-Public Use
  Company Number: PHHY2011US26728

PATIENT
  Sex: Male

DRUGS (3)
  1. EXJADE [Suspect]
     Dosage: 1500 MG, DAILY
     Route: 048
  2. CHEMOTHERAPEUTICS NOS [Concomitant]
  3. EXJADE [Suspect]
     Indication: MYELODYSPLASTIC SYNDROME
     Dosage: 1750 MG, DAILY
     Route: 048

REACTIONS (4)
  - COLITIS [None]
  - DIARRHOEA [None]
  - INFECTION [None]
  - PANCYTOPENIA [None]
